FAERS Safety Report 15005311 (Version 1)
Quarter: 2018Q2

REPORT INFORMATION
  Report Type: Spontaneous
  Country: US (occurrence: US)
  Receive Date: 20180525
  Receipt Date: 20180525
  Transmission Date: 20180711
  Serious: No
  Sender: FDA-Public Use
  Company Number: None

PATIENT
  Age: 50 Year
  Sex: Female
  Weight: 116.1 kg

DRUGS (8)
  1. BUPRENORPHINE SL [Suspect]
     Active Substance: BUPRENORPHINE
     Indication: PAIN
     Dosage: ?          QUANTITY:2.5 TABLET(S);?
     Route: 060
     Dates: start: 20170525, end: 20180525
  2. ATENOLOL. [Concomitant]
     Active Substance: ATENOLOL
  3. VENLAFAXINE [Concomitant]
     Active Substance: VENLAFAXINE HYDROCHLORIDE
  4. VALIUM [Concomitant]
     Active Substance: DIAZEPAM
  5. MULTIVITAMIN [Concomitant]
     Active Substance: VITAMINS
  6. PAMPRIN [Concomitant]
     Active Substance: IBUPROFEN
  7. GABAPENTIN. [Concomitant]
     Active Substance: GABAPENTIN
  8. TYLENOL [Concomitant]
     Active Substance: ACETAMINOPHEN

REACTIONS (1)
  - Dental caries [None]

NARRATIVE: CASE EVENT DATE: 20170525
